FAERS Safety Report 6861942-0 (Version None)
Quarter: 2010Q3

REPORT INFORMATION
  Report Type: 
  Country: None (occurrence: None)
  Receive Date: 20100720
  Receipt Date: 20100720
  Transmission Date: 20110219
  Serious: Yes (Hospitalization)
  Sender: FDA-Public Use
  Company Number: None

PATIENT
  Age: 28 Month
  Sex: Female
  Weight: 12.7007 kg

DRUGS (1)
  1. IBUPROFEN [Suspect]
     Dosage: 1 OR 2 LIQUID FILLED CAPSULES 4 TO 6 HOURS PO
     Route: 048
     Dates: start: 20100710, end: 20100710

REACTIONS (3)
  - ACCIDENTAL DRUG INTAKE BY CHILD [None]
  - ASPIRATION [None]
  - MEDICATION ERROR [None]
